FAERS Safety Report 15567822 (Version 2)
Quarter: 2018Q4

REPORT INFORMATION
  Report Type: Report from Study
  Country: None (occurrence: BE)
  Receive Date: 20181030
  Receipt Date: 20181122
  Transmission Date: 20190205
  Serious: No
  Sender: FDA-Public Use
  Company Number: BE-ABBVIE-18S-013-2524202-00

PATIENT
  Sex: Male

DRUGS (3)
  1. DUODOPA [Suspect]
     Active Substance: CARBIDOPA\LEVODOPA
     Indication: PARKINSON^S DISEASE
     Dosage: MD= 5ML;CD= 2.3ML/HR DURING 16HRS;ED= 1.5ML
     Route: 050
     Dates: start: 20130121, end: 20130601
  2. DUODOPA [Suspect]
     Active Substance: CARBIDOPA\LEVODOPA
     Dosage: MD= 0ML;CD= 2.0ML/HR DURING 16HRS ;ED= 0.5ML
     Route: 050
     Dates: start: 20170825
  3. DUODOPA [Suspect]
     Active Substance: CARBIDOPA\LEVODOPA
     Dosage: DOSES CONTINUOUSLY MONITORED AND ADAPTED
     Route: 050
     Dates: start: 20130601, end: 20170825

REACTIONS (7)
  - Unintentional medical device removal [Unknown]
  - Therapy partial responder [Unknown]
  - Medical device change [Unknown]
  - Device dislocation [Unknown]
  - Device breakage [Unknown]
  - Intentional device misuse [Unknown]
  - Musculoskeletal stiffness [Unknown]
